FAERS Safety Report 18921960 (Version 1)
Quarter: 2021Q1

REPORT INFORMATION
  Report Type: Spontaneous
  Country: US (occurrence: US)
  Receive Date: 20210220
  Receipt Date: 20210220
  Transmission Date: 20210420
  Serious: Yes (Other)
  Sender: FDA-Public Use
  Company Number: None

PATIENT
  Age: 38 Year
  Sex: Female
  Weight: 74.25 kg

DRUGS (3)
  1. ASPERCREME WARMING NO MESS [Suspect]
     Active Substance: CAPSAICIN
     Indication: BACK PAIN
     Route: 061
  2. EFFEXOR ER 150MG [Concomitant]
  3. LAMICTAL [Concomitant]
     Active Substance: LAMOTRIGINE

REACTIONS (1)
  - Application site burn [None]

NARRATIVE: CASE EVENT DATE: 20210220
